FAERS Safety Report 16568920 (Version 1)
Quarter: 2019Q3

REPORT INFORMATION
  Report Type: Spontaneous
  Country: US (occurrence: US)
  Receive Date: 20190531
  Receipt Date: 20190531
  Transmission Date: 20191004
  Serious: Yes (Other)
  Sender: FDA-Public Use
  Company Number: None

PATIENT
  Age: 74 Year
  Sex: Female
  Weight: 68.95 kg

DRUGS (10)
  1. TERBINAFINE. [Concomitant]
     Active Substance: TERBINAFINE
  2. PROLIA [Suspect]
     Active Substance: DENOSUMAB
     Indication: OSTEOPOROSIS
     Dates: start: 20190503
  3. DOXYCYCLINE. [Concomitant]
     Active Substance: DOXYCYCLINE
  4. ATORVASTATIN [Concomitant]
     Active Substance: ATORVASTATIN
  5. RESTASIS [Concomitant]
     Active Substance: CYCLOSPORINE
  6. MIRTAZAPINE. [Concomitant]
     Active Substance: MIRTAZAPINE
  7. NORCO [Concomitant]
     Active Substance: ACETAMINOPHEN\HYDROCODONE BITARTRATE
  8. VITAMIN D3 OTC [Concomitant]
  9. FATOTIDINE [Concomitant]
  10. TRAMADOL. [Concomitant]
     Active Substance: TRAMADOL

REACTIONS (3)
  - Bone disorder [None]
  - Tenderness [None]
  - Movement disorder [None]

NARRATIVE: CASE EVENT DATE: 20190504
